FAERS Safety Report 7600516-0 (Version None)
Quarter: 2011Q3

REPORT INFORMATION
  Report Type: 
  Country: None (occurrence: None)
  Receive Date: 20110711
  Receipt Date: 20110704
  Transmission Date: 20111222
  Serious: Yes (Hospitalization)
  Sender: FDA-Public Use
  Company Number: US-ROCHE-777902

PATIENT
  Age: 66 Year
  Sex: Female

DRUGS (6)
  1. DOCETAXEL [Suspect]
     Indication: BREAST CANCER
     Route: 042
     Dates: start: 20110330, end: 20110525
  2. TRASTUZUMAB [Suspect]
     Route: 042
     Dates: start: 20110330, end: 20110525
  3. TRASTUZUMAB [Suspect]
     Indication: BREAST CANCER
     Dosage: ON DAY 1 WEEK 1.
     Route: 042
     Dates: start: 20110330
  4. DEXAMETHASONE [Suspect]
     Route: 065
  5. GRANULOCYTE COLONY STIMULATING FACTOR [Concomitant]
  6. CARBOPLATIN [Suspect]
     Indication: BREAST CANCER
     Route: 042
     Dates: start: 20110330, end: 20110525

REACTIONS (1)
  - GASTRIC HAEMORRHAGE [None]
